FAERS Safety Report 25951008 (Version 1)
Quarter: 2025Q4

REPORT INFORMATION
  Report Type: Spontaneous
  Country: US (occurrence: US)
  Receive Date: 20251023
  Receipt Date: 20251023
  Transmission Date: 20260117
  Serious: Yes (Hospitalization, Other)
  Sender: STRIDES
  Company Number: US-STRIDES ARCOLAB LIMITED-2025SP013129

PATIENT
  Age: 39 Year
  Sex: Male

DRUGS (1)
  1. DEXTROAMPHETAMINE SULFATE [Suspect]
     Active Substance: DEXTROAMPHETAMINE SULFATE
     Indication: Fatigue
     Dosage: 120 MILLIGRAM, QD PRESCRIBED DOSE WAS 30MG DAILY
     Route: 065

REACTIONS (5)
  - Heart failure with reduced ejection fraction [Recovering/Resolving]
  - Atrial fibrillation [Recovered/Resolved]
  - Incorrect dose administered [Unknown]
  - Dilated cardiomyopathy [Recovering/Resolving]
  - Off label use [Unknown]
